FAERS Safety Report 5883969-8 (Version None)
Quarter: 2008Q3

REPORT INFORMATION
  Report Type: 
  Country: None (occurrence: None)
  Receive Date: 20080915
  Receipt Date: 20080909
  Transmission Date: 20090109
  Serious: Yes (Hospitalization, Other)
  Sender: FDA-Public Use
  Company Number: FR-GENENTECH-262782

PATIENT
  Sex: Male

DRUGS (5)
  1. RAPTIVA [Suspect]
     Indication: PSORIASIS
     Dosage: 0.6 UNK, 1/WEEK
     Route: 058
     Dates: start: 20050101, end: 20080401
  2. RAPTIVA [Suspect]
     Dosage: 0.7 UNK, 1/WEEK
     Route: 058
     Dates: start: 20080601
  3. CYCLOSPORINE [Concomitant]
     Indication: PSORIASIS
     Dosage: 75 MG, QD
     Dates: start: 20080403, end: 20080401
  4. CYCLOSPORINE [Concomitant]
     Dosage: 75 MG, QD
     Dates: end: 20080525
  5. POVIDONE IODINE [Concomitant]
     Indication: DRUG USE FOR UNKNOWN INDICATION
     Dosage: UNK
     Route: 061
     Dates: start: 20080401, end: 20080401

REACTIONS (3)
  - IODINE ALLERGY [None]
  - PSORIASIS [None]
  - VENOUS INSUFFICIENCY [None]
